FAERS Safety Report 10661003 (Version 2)
Quarter: 2014Q4

REPORT INFORMATION
  Report Type: Spontaneous
  Country: CN (occurrence: CN)
  Receive Date: 20141218
  Receipt Date: 20141218
  Transmission Date: 20150529
  Serious: Yes (Other)
  Sender: FDA-Public Use
  Company Number: CN-ACCORD-027596

PATIENT
  Age: 55 Year
  Sex: Female

DRUGS (2)
  1. FLUOXETINE [Concomitant]
     Active Substance: FLUOXETINE\FLUOXETINE HYDROCHLORIDE
     Indication: DEPRESSION
  2. QUETIAPINE [Suspect]
     Active Substance: QUETIAPINE
     Indication: INSOMNIA
     Dosage: RECEIVED PER NIGHT

REACTIONS (1)
  - Rapid eye movements sleep abnormal [Recovered/Resolved]
